FAERS Safety Report 4423025-9 (Version None)
Quarter: 2004Q3

REPORT INFORMATION
  Report Type: 
  Country: None (occurrence: None)
  Receive Date: 20040811
  Receipt Date: 20040730
  Transmission Date: 20050211
  Serious: Yes (Other)
  Sender: FDA-Public Use
  Company Number: US-JNJFOC-20040602961

PATIENT
  Sex: Female

DRUGS (2)
  1. TOPAMAX [Suspect]
     Route: 049
  2. TOPAMAX [Suspect]
     Indication: HEADACHE
     Route: 049

REACTIONS (1)
  - BLINDNESS UNILATERAL [None]
